FAERS Safety Report 19761298 (Version 1)
Quarter: 2021Q3

REPORT INFORMATION
  Report Type: Spontaneous
  Country: US (occurrence: US)
  Receive Date: 20210825
  Receipt Date: 20210825
  Transmission Date: 20211014
  Serious: No
  Sender: FDA-Public Use
  Company Number: None

PATIENT
  Sex: Female

DRUGS (1)
  1. HUMIRA [Suspect]
     Active Substance: ADALIMUMAB
     Indication: PSORIASIS
     Route: 058

REACTIONS (10)
  - Hypoaesthesia oral [None]
  - Skin disorder [None]
  - Erythema [None]
  - Taste disorder [None]
  - Dizziness [None]
  - Musculoskeletal stiffness [None]
  - Hypoaesthesia [None]
  - Psoriasis [None]
  - Solar lentigo [None]
  - Therapy interrupted [None]
